FAERS Safety Report 7322692-X (Version None)
Quarter: 2011Q1

REPORT INFORMATION
  Report Type: 
  Country: None (occurrence: None)
  Receive Date: 20110301
  Receipt Date: 20110225
  Transmission Date: 20110831
  Serious: No
  Sender: FDA-Public Use
  Company Number: US-PFIZER INC-2011041963

PATIENT
  Sex: Female

DRUGS (2)
  1. BENADRYL [Concomitant]
     Dosage: UNK
  2. ADVIL PM [Suspect]
     Dosage: 38 MG, DAILY

REACTIONS (4)
  - TONGUE DRY [None]
  - FEELING ABNORMAL [None]
  - FEAR [None]
  - DRY MOUTH [None]
